FAERS Safety Report 4474593-2 (Version None)
Quarter: 2004Q4

REPORT INFORMATION
  Report Type: 
  Country: None (occurrence: None)
  Receive Date: 20041008
  Receipt Date: 20040920
  Transmission Date: 20050328
  Serious: Yes (Hospitalization)
  Sender: FDA-Public Use
  Company Number: B0345817A

PATIENT
  Age: 68 Year
  Sex: Male
  Weight: 72.8477 kg

DRUGS (11)
  1. LANOXIN [Suspect]
     Dosage: .25 MG/KG
  2. AMIODARONE [Concomitant]
  3. FRUSEMIDE [Concomitant]
  4. ENALAPRIL MALEATE [Concomitant]
  5. SOTALOL HCL [Concomitant]
  6. SINTROM [Concomitant]
  7. METHOTREXATE [Concomitant]
  8. OLANZAPINE [Concomitant]
  9. NOTRTIPTYLINE [Concomitant]
  10. FOLIC ACID [Concomitant]
  11. OXAZEPAM [Concomitant]

REACTIONS (8)
  - ANTIPSYCHOTIC DRUG LEVEL ABOVE THERAPEUTIC [None]
  - BLOOD PRESSURE DECREASED [None]
  - CARDIOACTIVE DRUG LEVEL INCREASED [None]
  - DIZZINESS [None]
  - HEART RATE DECREASED [None]
  - INTERNATIONAL NORMALISED RATIO INCREASED [None]
  - THERAPEUTIC AGENT TOXICITY [None]
  - TREATMENT NONCOMPLIANCE [None]
